FAERS Safety Report 4563092-5 (Version None)
Quarter: 2005Q1

REPORT INFORMATION
  Report Type: 
  Country: None (occurrence: None)
  Receive Date: 20050125
  Receipt Date: 20050114
  Transmission Date: 20050727
  Serious: Yes (Hospitalization)
  Sender: FDA-Public Use
  Company Number: ZONI002088

PATIENT
  Age: 41 Year
  Sex: Female

DRUGS (2)
  1. EXCEGRAN (ZONISAMIDE) [Suspect]
     Dosage: 400 MG, ORAL
     Route: 048
     Dates: start: 20041109, end: 20041118
  2. DEPAKENE [Concomitant]

REACTIONS (3)
  - ECZEMA [None]
  - HEPATITIS ACUTE [None]
  - NASOPHARYNGITIS [None]
